FAERS Safety Report 7265254-5 (Version None)
Quarter: 2011Q1

REPORT INFORMATION
  Report Type: 
  Country: None (occurrence: None)
  Receive Date: 20110131
  Receipt Date: 20110127
  Transmission Date: 20110831
  Serious: Yes (Other)
  Sender: FDA-Public Use
  Company Number: US-PFIZER INC-2010041578

PATIENT
  Sex: Male
  Weight: 74.83 kg

DRUGS (5)
  1. IBUPROFEN [Concomitant]
     Dosage: FREQUENCY: AS NEEDED,
  2. CLINDAMYCIN HCL [Suspect]
     Indication: TOOTH DISORDER
  3. DOXYCYCLINE HYCLATE [Suspect]
     Indication: LYME DISEASE
  4. PROTONIX [Suspect]
     Dates: start: 20091228, end: 20100301
  5. TYLENOL-500 [Concomitant]
     Dosage: FREQUENCY: AS NEEDED,

REACTIONS (3)
  - DYSPNOEA [None]
  - PARAESTHESIA [None]
  - GASTROOESOPHAGEAL REFLUX DISEASE [None]
